FAERS Safety Report 18640007 (Version 2)
Quarter: 2021Q4

REPORT INFORMATION
  Report Type: Spontaneous
  Country: US (occurrence: US)
  Receive Date: 20201220
  Receipt Date: 20211217
  Transmission Date: 20220303
  Serious: No
  Sender: FDA-Public Use
  Company Number: US-PACIRA-202000320

PATIENT

DRUGS (2)
  1. EXPAREL [Suspect]
     Active Substance: BUPIVACAINE
     Dosage: 1 VIAL AS BLOCK, DOSE NOT PROVIDED
     Route: 065
  2. EXPAREL [Suspect]
     Active Substance: BUPIVACAINE
     Dosage: 1 VIAL AS LOCAL INFILTRATE, DOSE NOT PROVIDED

REACTIONS (2)
  - Off label use [Recovered/Resolved]
  - Extra dose administered [Recovered/Resolved]
